FAERS Safety Report 6782510-5 (Version None)
Quarter: 2010Q2

REPORT INFORMATION
  Report Type: 
  Country: None (occurrence: None)
  Receive Date: 20100616
  Receipt Date: 20100603
  Transmission Date: 20101027
  Serious: Yes (Other)
  Sender: FDA-Public Use
  Company Number: 8053106

PATIENT
  Sex: Female
  Weight: 53 kg

DRUGS (3)
  1. KEPPRA [Suspect]
     Indication: CONVULSION
     Dosage: 500 MG TID ORAL, TWICE DAILY ORAL
     Route: 048
     Dates: start: 20030101
  2. LEVETIRACETAM [Suspect]
     Dates: start: 20090101
  3. PRENATAL VITAMINS [Concomitant]

REACTIONS (8)
  - AURA [None]
  - COMPLICATION OF PREGNANCY [None]
  - CONVULSION [None]
  - DRUG EXPOSURE DURING PREGNANCY [None]
  - HEPATOSPLENOMEGALY [None]
  - HYDRONEPHROSIS [None]
  - PREGNANCY [None]
  - SYNCOPE [None]
